FAERS Safety Report 9977719 (Version 1)
Quarter: 2014Q1

REPORT INFORMATION
  Report Type: Report from Study
  Country: US (occurrence: US)
  Receive Date: 20140306
  Receipt Date: 20140306
  Transmission Date: 20141002
  Serious: No
  Sender: FDA-Public Use
  Company Number: US-ABBVIE-13P-163-1163291-00

PATIENT
  Age: 69 Year
  Sex: Male

DRUGS (9)
  1. HUMIRA [Suspect]
     Indication: RHEUMATOID ARTHRITIS
     Dates: start: 20131014
  2. ANAGRELIDE [Concomitant]
     Indication: PLATELET COUNT INCREASED
     Dosage: 5 MG DAILY
  3. POTASSIUM CHLORIDE [Concomitant]
     Indication: PROPHYLAXIS
  4. ANDROGEL [Concomitant]
     Indication: BLOOD TESTOSTERONE
     Dosage: PUMP
  5. LEXAPRO [Concomitant]
     Indication: DEPRESSION
     Dosage: 10 MG DAILY
  6. ASPIRIN [Concomitant]
     Indication: ANTICOAGULANT THERAPY
  7. HYDROCODONE [Concomitant]
     Indication: PAIN
  8. HYDROCODONE [Concomitant]
     Indication: JOINT INJURY
  9. ASACOL [Concomitant]
     Indication: COLITIS ULCERATIVE
     Dosage: 400 MG DAILY

REACTIONS (1)
  - Genital herpes [Not Recovered/Not Resolved]
